FAERS Safety Report 19990475 (Version 1)
Quarter: 2021Q4

REPORT INFORMATION
  Report Type: Spontaneous
  Country: US (occurrence: US)
  Receive Date: 20211023
  Receipt Date: 20211023
  Transmission Date: 20220303
  Serious: No
  Sender: FDA-Public Use
  Company Number: None

PATIENT
  Age: 24 Year
  Sex: Female

DRUGS (1)
  1. BAMLANIVIMAB [Suspect]
     Active Substance: BAMLANIVIMAB

REACTIONS (3)
  - Flushing [None]
  - Feeling hot [None]
  - Infusion related reaction [None]

NARRATIVE: CASE EVENT DATE: 20211023
